FAERS Safety Report 9412420 (Version 4)
Quarter: 2013Q3

REPORT INFORMATION
  Report Type: Spontaneous
  Country: NL (occurrence: NL)
  Receive Date: 20130722
  Receipt Date: 20130829
  Transmission Date: 20140515
  Serious: Yes (Life-Threatening, Hospitalization, Other)
  Sender: FDA-Public Use
  Company Number: NL-ELI_LILLY_AND_COMPANY-NL201307004010

PATIENT
  Age: 72 Year
  Sex: Male
  Weight: 44.6 kg

DRUGS (4)
  1. ZYPADHERA [Suspect]
     Indication: SCHIZOPHRENIA, PARANOID TYPE
     Dosage: 300 MG, 2/M
     Dates: start: 20110825
  2. NICOTINELL                         /01033301/ [Concomitant]
     Dosage: 35 MG, QD
     Route: 065
     Dates: start: 20130709
  3. MOVICOLON [Concomitant]
     Dosage: UNK, OTHER
     Route: 065
     Dates: start: 20130404
  4. VITAMIN D3 [Concomitant]
     Route: 048

REACTIONS (14)
  - Oxygen saturation decreased [Recovered/Resolved]
  - Myocardial infarction [Recovered/Resolved]
  - Haemoglobin decreased [Recovered/Resolved]
  - Confusional state [Recovered/Resolved]
  - Dysphagia [Recovered/Resolved]
  - Dysarthria [Recovered/Resolved]
  - Sedation [Recovered/Resolved]
  - Gait disturbance [Recovered/Resolved]
  - Tremor [Recovered/Resolved]
  - Asthenia [Recovered/Resolved]
  - Insomnia [Recovered/Resolved]
  - Body temperature increased [Recovered/Resolved]
  - Lower respiratory tract infection [Recovered/Resolved]
  - Urinary retention [Recovered/Resolved]
